FAERS Safety Report 12559861 (Version 5)
Quarter: 2017Q2

REPORT INFORMATION
  Report Type: Spontaneous
  Country: KR (occurrence: KR)
  Receive Date: 20160715
  Receipt Date: 20170516
  Transmission Date: 20170830
  Serious: Yes (Other)
  Sender: FDA-Public Use
  Company Number: KR-PFIZER INC-2016339211

PATIENT
  Age: 51 Year
  Sex: Female

DRUGS (1)
  1. ADVIL LIQUIGELS [Suspect]
     Active Substance: IBUPROFEN
     Indication: HEADACHE
     Dosage: 1 CAPSULE, ONE TIME ADMINISTRATION, SINGLE
     Route: 048
     Dates: start: 20160709, end: 20160709

REACTIONS (2)
  - Ocular hyperaemia [Recovered/Resolved]
  - Swelling face [Recovered/Resolved]

NARRATIVE: CASE EVENT DATE: 20160709
